FAERS Safety Report 6544187-3 (Version None)
Quarter: 2010Q1

REPORT INFORMATION
  Report Type: 
  Country: None (occurrence: None)
  Receive Date: 20100120
  Receipt Date: 20091216
  Transmission Date: 20100710
  Serious: Yes (Other)
  Sender: FDA-Public Use
  Company Number: IT-BAYER-201011707GPV

PATIENT
  Age: 39 Year
  Sex: Female

DRUGS (4)
  1. GYNO CANESTEN 12 TAV. 100 MG [Suspect]
     Indication: DRUG USE FOR UNKNOWN INDICATION
     Dosage: AT 2ND WEEK
  2. MICOXOLAMINA 6 OV.VAG. 100 MG [Suspect]
     Indication: DRUG USE FOR UNKNOWN INDICATION
     Dosage: AT 2ND WEEK
     Route: 065
  3. MECLON 10 CAND. VAG. [Suspect]
     Indication: DRUG USE FOR UNKNOWN INDICATION
     Dosage: AT 3RD WEEK
     Route: 065
  4. PEVARYL DEPOT 2 OV. 150 MG [Suspect]
     Indication: DRUG USE FOR UNKNOWN INDICATION
     Dosage: AT 3RD WEEK
     Route: 065

REACTIONS (1)
  - ABORTION SPONTANEOUS [None]
